FAERS Safety Report 14657748 (Version 2)
Quarter: 2018Q2

REPORT INFORMATION
  Report Type: Spontaneous
  Country: GB (occurrence: GB)
  Receive Date: 20180320
  Receipt Date: 20180404
  Transmission Date: 20180711
  Serious: Yes (Hospitalization)
  Sender: FDA-Public Use
  Company Number: GB-SUN PHARMACEUTICAL INDUSTRIES LTD-2018RR-167165

PATIENT
  Age: 58 Year
  Sex: Male

DRUGS (30)
  1. CIPROFLOXACIN. [Suspect]
     Active Substance: CIPROFLOXACIN
     Indication: OSTEOMYELITIS
     Dosage: 500 MG, DAILY
     Route: 048
     Dates: start: 20170522, end: 20170616
  2. TARGOCID [Suspect]
     Active Substance: TEICOPLANIN
     Indication: ARTHRITIS INFECTIVE
     Dosage: 1100 MG, DAILY
     Route: 065
     Dates: start: 20170523, end: 20170623
  3. TARGOCID [Suspect]
     Active Substance: TEICOPLANIN
     Route: 042
     Dates: start: 20170523, end: 20170623
  4. GLICLAZIDE [Concomitant]
     Active Substance: GLICLAZIDE
     Indication: PRODUCT USED FOR UNKNOWN INDICATION
     Dosage: UNK
     Route: 065
     Dates: start: 2017
  5. HUMULIN M3 [Concomitant]
     Active Substance: INSULIN HUMAN
     Dosage: ()
     Route: 065
     Dates: start: 2017
  6. ATORVASTATIN [Concomitant]
     Active Substance: ATORVASTATIN
     Dosage: ()
     Route: 065
     Dates: start: 2017
  7. RAMIPRIL. [Suspect]
     Active Substance: RAMIPRIL
     Dosage: UNK
     Route: 065
  8. TARGOCID [Suspect]
     Active Substance: TEICOPLANIN
     Indication: OSTEOMYELITIS
     Dosage: 800 MG, UNK
     Route: 042
     Dates: start: 20170624, end: 20170702
  9. PIROXICAM. [Concomitant]
     Active Substance: PIROXICAM
     Indication: PRODUCT USED FOR UNKNOWN INDICATION
     Dosage: UNK
     Route: 065
     Dates: start: 2017
  10. TARGOCID [Suspect]
     Active Substance: TEICOPLANIN
     Route: 042
     Dates: start: 20170523, end: 20170623
  11. ANORO ELLIPTA [Concomitant]
     Active Substance: UMECLIDINIUM BROMIDE\VILANTEROL TRIFENATATE
     Indication: PRODUCT USED FOR UNKNOWN INDICATION
     Dosage: UNK
     Route: 065
     Dates: start: 2017
  12. TRAMADOL. [Concomitant]
     Active Substance: TRAMADOL
     Dosage: ()
     Route: 065
     Dates: start: 20170419
  13. THIAMINE. [Concomitant]
     Active Substance: THIAMINE
     Indication: PRODUCT USED FOR UNKNOWN INDICATION
     Dosage: UNK
     Route: 065
     Dates: start: 2017
  14. NICOTINE. [Concomitant]
     Active Substance: NICOTINE
     Indication: PRODUCT USED FOR UNKNOWN INDICATION
     Dosage: TRANSDERMAL PATCHES
     Route: 062
  15. TARGOCID [Suspect]
     Active Substance: TEICOPLANIN
     Route: 042
     Dates: start: 20170522, end: 20170522
  16. METFORMIN [Concomitant]
     Active Substance: METFORMIN HYDROCHLORIDE
     Dosage: ()
     Route: 065
  17. TARGOCID [Suspect]
     Active Substance: TEICOPLANIN
     Dosage: 2200 MG, DAILY
     Route: 042
     Dates: start: 20170522, end: 20170522
  18. SALBUTAMOL [Concomitant]
     Active Substance: ALBUTEROL
     Indication: PRODUCT USED FOR UNKNOWN INDICATION
     Dosage: UNK
     Route: 065
     Dates: start: 2017
  19. SITAGLIPTIN [Concomitant]
     Active Substance: SITAGLIPTIN
     Indication: PRODUCT USED FOR UNKNOWN INDICATION
     Dosage: UNK
     Route: 065
  20. SILDENAFIL. [Concomitant]
     Active Substance: SILDENAFIL
     Dosage: ()
     Route: 065
  21. AMITRIPTYLIN [Concomitant]
     Active Substance: AMITRIPTYLINE
     Dosage: ()
     Route: 065
     Dates: start: 2017
  22. AMOXICILLIN. [Suspect]
     Active Substance: AMOXICILLIN
     Indication: OSTEOMYELITIS
     Dosage: UNK
     Route: 048
     Dates: start: 20170516
  23. TARGOCID [Suspect]
     Active Substance: TEICOPLANIN
     Route: 042
     Dates: start: 20170522, end: 20170522
  24. CIPROFLOXACIN. [Concomitant]
     Active Substance: CIPROFLOXACIN
     Indication: PRODUCT USED FOR UNKNOWN INDICATION
     Dosage: UNK
     Route: 065
  25. AMLODIPINE [Concomitant]
     Active Substance: AMLODIPINE BESYLATE
     Indication: PRODUCT USED FOR UNKNOWN INDICATION
     Dosage: UNK
     Route: 065
  26. BISOPROLOL [Concomitant]
     Active Substance: BISOPROLOL
     Dosage: ()
     Route: 065
  27. ASPIRIN. [Concomitant]
     Active Substance: ASPIRIN
     Indication: PRODUCT USED FOR UNKNOWN INDICATION
     Dosage: UNK
     Route: 065
  28. RAMIPRIL. [Suspect]
     Active Substance: RAMIPRIL
     Indication: HYPERTENSION
     Dosage: 10 MG, DAILY
     Route: 048
     Dates: end: 20170629
  29. TARGOCID [Suspect]
     Active Substance: TEICOPLANIN
     Route: 042
     Dates: start: 20170624, end: 20170702
  30. GABAPENTIN. [Concomitant]
     Active Substance: GABAPENTIN
     Indication: PRODUCT USED FOR UNKNOWN INDICATION
     Dosage: UNK
     Route: 065

REACTIONS (5)
  - Platelet count increased [Recovered/Resolved]
  - Laboratory test abnormal [Not Recovered/Not Resolved]
  - Blood creatinine increased [Recovered/Resolved]
  - Pyrexia [Recovered/Resolved]
  - C-reactive protein increased [Recovered/Resolved]

NARRATIVE: CASE EVENT DATE: 20170606
